FAERS Safety Report 6695392-7 (Version None)
Quarter: 2010Q2

REPORT INFORMATION
  Report Type: 
  Country: None (occurrence: None)
  Receive Date: 20100423
  Receipt Date: 20100423
  Transmission Date: 20101027
  Serious: Yes (Hospitalization)
  Sender: FDA-Public Use
  Company Number: None

PATIENT
  Age: 31 Year
  Sex: Female
  Weight: 88.1 kg

DRUGS (8)
  1. BACTRIM [Suspect]
     Indication: STAPHYLOCOCCAL INFECTION
     Dosage: PO RECENT
     Route: 048
  2. ADVAIR DISKUS 100/50 [Concomitant]
  3. ALBUTEROL [Concomitant]
  4. M.V.I. [Concomitant]
  5. CALCIUM CARBONATE [Concomitant]
  6. VIT B12 [Concomitant]
  7. VIT D3 [Concomitant]
  8. FERROUS SULFATE TAB [Concomitant]

REACTIONS (3)
  - NEUTROPENIA [None]
  - PYREXIA [None]
  - RENAL FAILURE ACUTE [None]
